FAERS Safety Report 7250414-X (Version None)
Quarter: 2011Q1

REPORT INFORMATION
  Report Type: 
  Country: None (occurrence: None)
  Receive Date: 20110128
  Receipt Date: 20110118
  Transmission Date: 20110831
  Serious: Yes (Death)
  Sender: FDA-Public Use
  Company Number: JP-ROCHE-753200

PATIENT
  Sex: Male
  Weight: 33 kg

DRUGS (4)
  1. PARAPLATIN [Concomitant]
     Indication: LUNG ADENOCARCINOMA
     Dosage: NOTE: DOSAGE WAS UNCERTAIN.
     Route: 041
     Dates: start: 20101220, end: 20101220
  2. AVASTIN [Suspect]
     Indication: LUNG ADENOCARCINOMA
     Route: 041
     Dates: start: 20101220, end: 20101220
  3. HYDROXOCOBALAMIN ACETATE [Concomitant]
     Route: 030
     Dates: start: 20101219
  4. ALIMTA [Concomitant]
     Indication: LUNG ADENOCARCINOMA
     Dosage: NOTE: DOSAGE WAS UNCERTAIN.
     Route: 041
     Dates: start: 20101220, end: 20101220

REACTIONS (1)
  - ACUTE RESPIRATORY DISTRESS SYNDROME [None]
